FAERS Safety Report 6255698-2 (Version None)
Quarter: 2009Q3

REPORT INFORMATION
  Report Type: 
  Country: None (occurrence: None)
  Receive Date: 20090701
  Receipt Date: 20090624
  Transmission Date: 20100115
  Serious: Yes (Death, Hospitalization)
  Sender: FDA-Public Use
  Company Number: 220011K09BRA

PATIENT
  Sex: Female

DRUGS (1)
  1. SAIZEN [Suspect]
     Indication: OFF LABEL USE
     Dosage: 8 IU, 1 IN 1 DAYS
     Dates: start: 20090316, end: 20090504

REACTIONS (1)
  - CARDIOMYOPATHY [None]
